FAERS Safety Report 6314198-1 (Version None)
Quarter: 2009Q3

REPORT INFORMATION
  Report Type: 
  Country: None (occurrence: None)
  Receive Date: 20090817
  Receipt Date: 20090803
  Transmission Date: 20100115
  Serious: Yes (Death, Hospitalization)
  Sender: FDA-Public Use
  Company Number: 2008AL010502

PATIENT
  Age: 82 Year
  Sex: Male
  Weight: 65.7716 kg

DRUGS (25)
  1. DIGOXIN [Suspect]
     Indication: CARDIAC FAILURE CONGESTIVE
     Dosage: 0.125MG, DAILY, PO; 0.125MG, QOD, PO
     Route: 048
     Dates: start: 20061201, end: 20071102
  2. COREG [Concomitant]
  3. AMIODERONE [Concomitant]
  4. ZOCOR [Concomitant]
  5. NIASPAN [Concomitant]
  6. LEXAPRO [Concomitant]
  7. DIOVAN [Concomitant]
  8. GLIPIZIDE [Concomitant]
  9. PRILOSEC [Concomitant]
  10. FLOMAX [Concomitant]
  11. LASIX [Concomitant]
  12. ASPIRIN [Concomitant]
  13. MULTIVITAMIN [Concomitant]
  14. DETROL [Concomitant]
  15. OXYGEN [Concomitant]
  16. KLOR-CON [Concomitant]
  17. GLIPIZIDE [Concomitant]
  18. SIMVASTATIN [Concomitant]
  19. PACERONE [Concomitant]
  20. CELEXA [Concomitant]
  21. NORVASC [Concomitant]
  22. ZELNORM [Concomitant]
  23. GLYCOLAX [Concomitant]
  24. NITROGLYCERIN [Concomitant]
  25. COUMADIN [Concomitant]

REACTIONS (58)
  - ABASIA [None]
  - ALTERED STATE OF CONSCIOUSNESS [None]
  - ANAEMIA [None]
  - ANHEDONIA [None]
  - ARTHRALGIA [None]
  - ARTHRITIS [None]
  - ASTHENIA [None]
  - ATRIOVENTRICULAR BLOCK COMPLETE [None]
  - AZOTAEMIA [None]
  - BALANCE DISORDER [None]
  - BLINDNESS UNILATERAL [None]
  - BLOOD GLUCOSE INCREASED [None]
  - BRONCHITIS [None]
  - CARDIAC ARREST [None]
  - CARDIAC FAILURE CONGESTIVE [None]
  - CONDUCTION DISORDER [None]
  - CONFUSIONAL STATE [None]
  - DEAFNESS [None]
  - DELIRIUM [None]
  - DISORIENTATION [None]
  - DIZZINESS [None]
  - DYSPHAGIA [None]
  - EAR DISCOMFORT [None]
  - EATING DISORDER [None]
  - ECONOMIC PROBLEM [None]
  - EJECTION FRACTION DECREASED [None]
  - ELECTROCARDIOGRAM ST-T CHANGE [None]
  - EXCORIATION [None]
  - EXPOSURE TO CHEMICAL POLLUTION [None]
  - EYE INJURY [None]
  - FALL [None]
  - FATIGUE [None]
  - FEELING ABNORMAL [None]
  - HAEMATOCRIT DECREASED [None]
  - HAEMOGLOBIN DECREASED [None]
  - HEAD INJURY [None]
  - HYPOTENSION [None]
  - INTERMITTENT CLAUDICATION [None]
  - MENTAL STATUS CHANGES [None]
  - MITRAL VALVE INCOMPETENCE [None]
  - MULTIPLE INJURIES [None]
  - MUSCULAR WEAKNESS [None]
  - MUSCULOSKELETAL PAIN [None]
  - OEDEMA PERIPHERAL [None]
  - PAIN [None]
  - PAIN IN EXTREMITY [None]
  - PALPITATIONS [None]
  - PLATELET COUNT DECREASED [None]
  - PNEUMONIA [None]
  - RENAL FAILURE [None]
  - SINUS BRADYCARDIA [None]
  - SINUSITIS [None]
  - TEMPERATURE INTOLERANCE [None]
  - THERAPEUTIC AGENT TOXICITY [None]
  - TRANSAMINASES INCREASED [None]
  - VERTIGO [None]
  - WEIGHT INCREASED [None]
  - WRIST FRACTURE [None]
